FAERS Safety Report 7287529-6 (Version None)
Quarter: 2011Q1

REPORT INFORMATION
  Report Type: 
  Country: None (occurrence: None)
  Receive Date: 20110211
  Receipt Date: 20110201
  Transmission Date: 20110831
  Serious: Yes (Other)
  Sender: FDA-Public Use
  Company Number: JP-NOVOPROD-321760

PATIENT
  Age: 84 Year
  Sex: Male

DRUGS (3)
  1. VICTOZA [Suspect]
     Dosage: 0.6 MG, QD
     Route: 065
  2. VICTOZA [Suspect]
     Indication: TYPE 2 DIABETES MELLITUS
     Dosage: 0.3 MG, QD
     Route: 065
  3. VICTOZA [Suspect]
     Dosage: 0.3 UNK, UNK
     Route: 065

REACTIONS (1)
  - BLOOD PRESSURE DECREASED [None]
